FAERS Safety Report 8094628-8 (Version None)
Quarter: 2012Q1

REPORT INFORMATION
  Report Type: 
  Country: None (occurrence: None)
  Receive Date: 20120131
  Receipt Date: 20120118
  Transmission Date: 20120608
  Serious: Yes (Hospitalization)
  Sender: FDA-Public Use
  Company Number: IT-NOVOPROD-343375

PATIENT
  Age: 75 Year
  Sex: Male

DRUGS (6)
  1. REPAGLINIDE [Suspect]
     Indication: DIABETES MELLITUS
     Dosage: 3 MG, QD
     Dates: start: 20110208, end: 20110808
  2. AMLODIPINA                         /00972401/ [Concomitant]
  3. BENEXOL                            /00176001/ [Concomitant]
  4. AMARYL [Suspect]
     Dosage: 3 MG, QD
     Route: 048
     Dates: start: 20090101, end: 20110808
  5. ESCITALOPRAM [Concomitant]
  6. SIMVASTATIN [Suspect]
     Indication: DYSLIPIDAEMIA
     Dosage: 20 MG, QD
     Route: 048
     Dates: start: 20110208, end: 20110808

REACTIONS (6)
  - DEPRESSED LEVEL OF CONSCIOUSNESS [None]
  - RHABDOMYOLYSIS [None]
  - HYPOGLYCAEMIA [None]
  - NEUROTOXICITY [None]
  - PSYCHOMOTOR HYPERACTIVITY [None]
  - CONFUSIONAL STATE [None]
